FAERS Safety Report 15662194 (Version 3)
Quarter: 2018Q4

REPORT INFORMATION
  Report Type: Spontaneous
  Country: US (occurrence: US)
  Receive Date: 20181127
  Receipt Date: 20181129
  Transmission Date: 20190205
  Serious: Yes (Other)
  Sender: FDA-Public Use
  Company Number: US-ENDO PHARMACEUTICALS INC-2018-043011

PATIENT
  Sex: Female

DRUGS (7)
  1. VINCRISTINE [Suspect]
     Active Substance: VINCRISTINE
     Indication: RETINOBLASTOMA
  2. CARBOPLATIN. [Suspect]
     Active Substance: CARBOPLATIN
     Indication: CHEMOTHERAPY MULTIPLE AGENTS SYSTEMIC
     Dosage: UNK UNKNOWN, UNKNOWN
     Route: 042
  3. VINCRISTINE [Suspect]
     Active Substance: VINCRISTINE
     Indication: CHEMOTHERAPY MULTIPLE AGENTS SYSTEMIC
     Dosage: UNK UNKNOWN, UNKNOWN
     Route: 042
  4. ETOPOSIDE. [Suspect]
     Active Substance: ETOPOSIDE
     Indication: RETINOBLASTOMA
  5. MELPHALAN HYDROCHLORIDE. [Suspect]
     Active Substance: MELPHALAN HYDROCHLORIDE
     Indication: RETINOBLASTOMA
     Dosage: MEDIAN DOSE 30 ?G (RANGE: 20-30), UNKNOWN
     Route: 031
  6. CARBOPLATIN. [Suspect]
     Active Substance: CARBOPLATIN
     Indication: RETINOBLASTOMA
  7. ETOPOSIDE. [Suspect]
     Active Substance: ETOPOSIDE
     Indication: CHEMOTHERAPY MULTIPLE AGENTS SYSTEMIC
     Dosage: UNK UNKNOWN, UNKNOWN
     Route: 042

REACTIONS (3)
  - Retinal pigment epitheliopathy [Unknown]
  - Off label use [Unknown]
  - Cellulitis [None]
